FAERS Safety Report 7130976-3 (Version None)
Quarter: 2010Q4

REPORT INFORMATION
  Report Type: 
  Country: None (occurrence: None)
  Receive Date: 20101201
  Receipt Date: 20101119
  Transmission Date: 20110411
  Serious: Yes (Death, Hospitalization)
  Sender: FDA-Public Use
  Company Number: A0878763A

PATIENT
  Age: 46 Year
  Sex: Male

DRUGS (1)
  1. AVANDIA [Suspect]
     Indication: DIABETES MELLITUS
     Dosage: 4MG PER DAY
     Route: 048
     Dates: start: 20020801, end: 20080924

REACTIONS (7)
  - ARTERIOSCLEROSIS [None]
  - CARDIAC ARREST [None]
  - DEATH [None]
  - FLUID OVERLOAD [None]
  - FLUID RETENTION [None]
  - HEART INJURY [None]
  - MYOCARDIAL INFARCTION [None]
